FAERS Safety Report 4861041-3 (Version None)
Quarter: 2005Q4

REPORT INFORMATION
  Report Type: 
  Country: None (occurrence: None)
  Receive Date: 20051216
  Receipt Date: 20051206
  Transmission Date: 20060501
  Serious: Yes (Other)
  Sender: FDA-Public Use
  Company Number: 200512IM000792

PATIENT
  Age: 61 Year
  Sex: Female

DRUGS (1)
  1. ADVAFERON (A643_INTERFERON ALFACON-1) [Suspect]
     Indication: HEPATITIS C
     Dosage: 18 MU, TIW, SUBCUTANEOUS
     Route: 058
     Dates: start: 20020801, end: 20040301

REACTIONS (1)
  - RETINAL VEIN OCCLUSION [None]
